FAERS Safety Report 7899114-3 (Version None)
Quarter: 2011Q4

REPORT INFORMATION
  Report Type: 
  Country: None (occurrence: None)
  Receive Date: 20111107
  Receipt Date: 20110916
  Transmission Date: 20120403
  Serious: No
  Sender: FDA-Public Use
  Company Number: US-AMGEN-USASP2011022421

PATIENT
  Age: 10 Year
  Sex: Female
  Weight: 35 kg

DRUGS (4)
  1. TREXALL [Concomitant]
     Dosage: 1 MG, QWK
     Dates: start: 20091030, end: 20110418
  2. NAPROXEN [Concomitant]
     Dosage: UNK
     Dates: start: 20020101, end: 20110418
  3. ENBREL [Suspect]
     Indication: JUVENILE ARTHRITIS
     Dosage: 25 MG, QWK
     Route: 058
     Dates: start: 20110130, end: 20110308
  4. ENBREL [Suspect]
     Dosage: 25 MG, UNK
     Route: 058
     Dates: start: 20110322, end: 20110418

REACTIONS (11)
  - GASTROENTERITIS VIRAL [None]
  - DIARRHOEA [None]
  - URTICARIA [None]
  - UPPER RESPIRATORY TRACT INFECTION [None]
  - SINUSITIS [None]
  - SWOLLEN TONGUE [None]
  - ABDOMINAL MASS [None]
  - THROAT TIGHTNESS [None]
  - FOOD ALLERGY [None]
  - JUVENILE ARTHRITIS [None]
  - ABDOMINAL PAIN [None]
